FAERS Safety Report 7522934-1 (Version None)
Quarter: 2011Q2

REPORT INFORMATION
  Report Type: 
  Country: None (occurrence: None)
  Receive Date: 20110603
  Receipt Date: 20110525
  Transmission Date: 20111010
  Serious: Yes (Hospitalization, Other)
  Sender: FDA-Public Use
  Company Number: US-AMGEN-USASP2011027491

PATIENT
  Age: 52 Year
  Sex: Male

DRUGS (1)
  1. ENBREL [Suspect]
     Indication: PSORIASIS
     Dosage: 50 MG, 2 TIMES/WK
     Dates: start: 20110301

REACTIONS (5)
  - CHEST PAIN [None]
  - INJECTION SITE PAIN [None]
  - DEPRESSION [None]
  - THYROID FUNCTION TEST ABNORMAL [None]
  - DRUG INEFFECTIVE [None]
